FAERS Safety Report 8455922-1 (Version None)
Quarter: 2012Q2

REPORT INFORMATION
  Report Type: 
  Country: None (occurrence: None)
  Receive Date: 20120621
  Receipt Date: 20120618
  Transmission Date: 20120825
  Serious: Yes (Other)
  Sender: FDA-Public Use
  Company Number: PHHY2012BE051999

PATIENT
  Age: 26 Year
  Sex: Female

DRUGS (4)
  1. CEFTRIAXONE [Suspect]
  2. AMPICILLIN [Suspect]
  3. ACYCLOVIR [Concomitant]
  4. DOXYCYCLINE [Suspect]

REACTIONS (6)
  - RASH [None]
  - CONDITION AGGRAVATED [None]
  - ENCEPHALOPATHY [None]
  - JARISCH-HERXHEIMER REACTION [None]
  - HYPOTENSION [None]
  - AGITATION [None]
